FAERS Safety Report 20380344 (Version 1)
Quarter: 2022Q1

REPORT INFORMATION
  Report Type: Spontaneous
  Country: GB (occurrence: GB)
  Receive Date: 20220127
  Receipt Date: 20220127
  Transmission Date: 20220423
  Serious: Yes (Disabling, Other)
  Sender: FDA-Public Use
  Company Number: None

PATIENT
  Age: 83 Year
  Sex: Female
  Weight: 73 kg

DRUGS (9)
  1. CLOPIDOGREL BISULFATE [Suspect]
     Active Substance: CLOPIDOGREL BISULFATE
     Dosage: UNK
     Route: 048
     Dates: start: 20220114
  2. AMOXICILLIN [Concomitant]
     Active Substance: AMOXICILLIN
     Dosage: UNK, TID
     Dates: start: 20211118
  3. ASPIRIN [Concomitant]
     Active Substance: ASPIRIN
     Dosage: UNK, QD
     Dates: start: 20211110, end: 20220113
  4. ASPIRIN [Concomitant]
     Active Substance: ASPIRIN
     Dosage: UNK,QD
     Dates: start: 20211110
  5. BISOPROLOL [Concomitant]
     Active Substance: BISOPROLOL
     Dosage: UNK, QD
     Dates: start: 20211110
  6. DIAZEPAM [Concomitant]
     Active Substance: DIAZEPAM
     Dosage: UNK, TID
     Dates: start: 20220117
  7. LERCANIDIPINE [Concomitant]
     Active Substance: LERCANIDIPINE
     Dosage: UNK, QD
     Dates: start: 20211110
  8. NICORANDIL [Concomitant]
     Active Substance: NICORANDIL
     Dosage: UNK, TID
     Dates: start: 20211110
  9. ROSUVASTATIN [Concomitant]
     Active Substance: ROSUVASTATIN
     Dosage: UNK, QD
     Dates: start: 20211110

REACTIONS (1)
  - Anxiety disorder [Unknown]

NARRATIVE: CASE EVENT DATE: 20220114
